FAERS Safety Report 11831059 (Version 1)
Quarter: 2015Q4

REPORT INFORMATION
  Report Type: Other
  Country: GB (occurrence: GB)
  Receive Date: 20151214
  Receipt Date: 20151214
  Transmission Date: 20160305
  Serious: Yes (Other)
  Sender: FDA-Public Use
  Company Number: GB-CIPLA LTD.-2015GB09230

PATIENT

DRUGS (2)
  1. NEXPLANON [Concomitant]
     Active Substance: ETONOGESTREL
     Dosage: 68 MG, UNK
     Route: 059
  2. CITALOPRAM [Suspect]
     Active Substance: CITALOPRAM HYDROBROMIDE
     Indication: ANXIETY
     Dosage: 20 MG, QD
     Route: 065

REACTIONS (1)
  - Alcoholism [Recovered/Resolved]
